FAERS Safety Report 9281178 (Version 1)
Quarter: 2013Q2

REPORT INFORMATION
  Report Type: Spontaneous
  Country: NL (occurrence: NL)
  Receive Date: 20130509
  Receipt Date: 20130509
  Transmission Date: 20140414
  Serious: Yes (Other)
  Sender: FDA-Public Use
  Company Number: NL-ASTRAZENECA-2013SE31093

PATIENT
  Age: 6378 Day
  Sex: Female

DRUGS (2)
  1. SEROQUEL [Suspect]
     Route: 048
     Dates: start: 20120731
  2. VENLAFAXINE [Interacting]
     Indication: DEPRESSION
     Route: 048
     Dates: start: 20130315, end: 20130316

REACTIONS (3)
  - Drug interaction [Recovered/Resolved]
  - Syncope [Recovered/Resolved]
  - Feeling of body temperature change [Recovered/Resolved]
